FAERS Safety Report 6918220-0 (Version None)
Quarter: 2010Q3

REPORT INFORMATION
  Report Type: 
  Country: None (occurrence: None)
  Receive Date: 20100806
  Receipt Date: 20100803
  Transmission Date: 20110219
  Serious: Yes (Death)
  Sender: FDA-Public Use
  Company Number: 2010SP042173

PATIENT
  Age: 55 Year
  Sex: Male

DRUGS (3)
  1. SAPHRIS [Suspect]
     Indication: SCHIZOPHRENIA
     Dosage: 5 MG;BID;SL, 10 MG;BID;SL
     Route: 060
     Dates: start: 20100713
  2. SAPHRIS [Suspect]
     Indication: SCHIZOPHRENIA
     Dosage: 5 MG;BID;SL, 10 MG;BID;SL
     Route: 060
     Dates: start: 20100729
  3. SAPHRIS [Suspect]

REACTIONS (8)
  - AGITATION [None]
  - ANGER [None]
  - COMPLETED SUICIDE [None]
  - GUN SHOT WOUND [None]
  - HALLUCINATION [None]
  - LOGORRHOEA [None]
  - NERVOUSNESS [None]
  - PARANOIA [None]
